FAERS Safety Report 12222606 (Version 1)
Quarter: 2016Q1

REPORT INFORMATION
  Report Type: Spontaneous
  Country: US (occurrence: US)
  Receive Date: 20160330
  Receipt Date: 20160330
  Transmission Date: 20160526
  Serious: No
  Sender: FDA-Public Use
  Company Number: US-MYLANLABS-2015M1027170

PATIENT
  Age: 38 Year
  Sex: Female

DRUGS (3)
  1. NORCO [Concomitant]
     Active Substance: ACETAMINOPHEN\HYDROCODONE BITARTRATE
     Indication: PAIN
  2. FENTANYL TRANSDERMAL SYSTEM [Suspect]
     Active Substance: FENTANYL
     Indication: PAIN
     Dosage: 75 ?G, QH, CHANGED Q48H
     Route: 062
     Dates: start: 201501
  3. TEGADERM [Suspect]
     Active Substance: 2-HYDROXYETHYL METHACRYLATE
     Dosage: UNK
     Dates: start: 201507, end: 201507

REACTIONS (5)
  - Drug effect decreased [Not Recovered/Not Resolved]
  - Application site vesicles [Recovered/Resolved]
  - Wrong technique in product usage process [Recovered/Resolved]
  - Application site scar [Not Recovered/Not Resolved]
  - Application site infection [Recovered/Resolved]

NARRATIVE: CASE EVENT DATE: 201507
